FAERS Safety Report 5519854-0 (Version None)
Quarter: 2007Q4

REPORT INFORMATION
  Report Type: 
  Country: None (occurrence: None)
  Receive Date: 20071116
  Receipt Date: 20070924
  Transmission Date: 20080405
  Serious: No
  Sender: FDA-Public Use
  Company Number: A0683817A

PATIENT
  Sex: Female

DRUGS (5)
  1. COREG CR [Suspect]
     Indication: HYPERTENSION
     Dosage: 20MG PER DAY
     Route: 048
     Dates: start: 20070917, end: 20070921
  2. LISINOPRIL [Concomitant]
  3. LIPITOR [Concomitant]
  4. PAMELOR [Concomitant]
  5. SENNA [Concomitant]

REACTIONS (3)
  - BLOOD PRESSURE DECREASED [None]
  - HEADACHE [None]
  - MUSCLE SPASMS [None]
